FAERS Safety Report 9410240 (Version 3)
Quarter: 2013Q4

REPORT INFORMATION
  Report Type: Spontaneous
  Country: GB (occurrence: GB)
  Receive Date: 20130719
  Receipt Date: 20131101
  Transmission Date: 20140711
  Serious: Yes (Hospitalization, Other)
  Sender: FDA-Public Use
  Company Number: GB-B.I. PHARMACEUTICALS,INC./RIDGEFIELD-2013-UK-01314UK

PATIENT
  Age: 70 Year
  Sex: Male
  Weight: 95 kg

DRUGS (2)
  1. PRADAXA [Suspect]
     Indication: ATRIAL FIBRILLATION
     Route: 048
     Dates: start: 2012
  2. IBUPROFEN SODIUM [Concomitant]

REACTIONS (3)
  - Extradural haematoma [Unknown]
  - Traumatic haemorrhage [Recovered/Resolved with Sequelae]
  - Neurological symptom [Unknown]
